FAERS Safety Report 10460265 (Version 2)
Quarter: 2014Q4

REPORT INFORMATION
  Report Type: Spontaneous
  Country: FR (occurrence: FR)
  Receive Date: 20140917
  Receipt Date: 20141002
  Transmission Date: 20150528
  Serious: Yes (Other)
  Sender: FDA-Public Use
  Company Number: FR-ABBVIE-14P-056-1282993-00

PATIENT
  Age: 18 Year
  Sex: Male

DRUGS (3)
  1. KALETRA [Suspect]
     Active Substance: LOPINAVIR\RITONAVIR
     Indication: HIV INFECTION
  2. KALETRA [Suspect]
     Active Substance: LOPINAVIR\RITONAVIR
     Indication: PROPHYLAXIS AGAINST HIV INFECTION
     Dosage: 200/50
     Route: 048
     Dates: start: 20140821
  3. TRUVADA [Suspect]
     Active Substance: EMTRICITABINE\TENOFOVIR DISOPROXIL FUMARATE
     Indication: ACCIDENTAL EXPOSURE TO PRODUCT
     Route: 048
     Dates: start: 20140821, end: 201409

REACTIONS (5)
  - Hyperbilirubinaemia [Unknown]
  - Jaundice [Unknown]
  - Bilirubin conjugated increased [Unknown]
  - Blood bilirubin unconjugated increased [Unknown]
  - Vomiting [Unknown]

NARRATIVE: CASE EVENT DATE: 201409
